FAERS Safety Report 7635304-2 (Version None)
Quarter: 2011Q3

REPORT INFORMATION
  Report Type: 
  Country: None (occurrence: None)
  Receive Date: 20110726
  Receipt Date: 20110630
  Transmission Date: 20111222
  Serious: Yes (Other)
  Sender: FDA-Public Use
  Company Number: US-ASTRAZENECA-2011SE39342

PATIENT
  Age: 55 Year
  Sex: Female

DRUGS (3)
  1. SEROQUEL [Suspect]
     Route: 048
     Dates: start: 20110531
  2. SEROQUEL [Suspect]
     Route: 048
     Dates: start: 20060801
  3. GABAPENTIN [Concomitant]
     Dates: start: 20110531

REACTIONS (5)
  - HEADACHE [None]
  - VISUAL IMPAIRMENT [None]
  - CEREBRAL HAEMORRHAGE [None]
  - MONOPLEGIA [None]
  - HEAD DISCOMFORT [None]
